FAERS Safety Report 15345520 (Version 3)
Quarter: 2018Q4

REPORT INFORMATION
  Report Type: Report from Study
  Country: None (occurrence: AR)
  Receive Date: 20180903
  Receipt Date: 20181102
  Transmission Date: 20190204
  Serious: Yes (Hospitalization, Other)
  Sender: FDA-Public Use
  Company Number: AR-ABBVIE-18S-007-2472913-00

PATIENT
  Age: 57 Year
  Sex: Male

DRUGS (1)
  1. VIEKIRA PAK [Suspect]
     Active Substance: DASABUVIR\OMBITASVIR\PARITAPREVIR\RITONAVIR
     Indication: HEPATITIS C
     Dosage: 3 AT MORNING AND 1 AT NIGHT
     Route: 048
     Dates: start: 20180716, end: 20180915

REACTIONS (9)
  - Loss of consciousness [Recovering/Resolving]
  - Ulcer [Unknown]
  - Gastritis [Unknown]
  - Haemorrhage [Unknown]
  - Nausea [Recovering/Resolving]
  - Anaemia [Recovered/Resolved]
  - Pyrexia [Recovering/Resolving]
  - Haemorrhoids [Unknown]
  - Diarrhoea [Recovered/Resolved]

NARRATIVE: CASE EVENT DATE: 2018
